FAERS Safety Report 8048150-5 (Version None)
Quarter: 2012Q1

REPORT INFORMATION
  Report Type: 
  Country: None (occurrence: None)
  Receive Date: 20120113
  Receipt Date: 20120113
  Transmission Date: 20120608
  Serious: Yes (Hospitalization)
  Sender: FDA-Public Use
  Company Number: None

PATIENT
  Age: 84 Year
  Sex: Male
  Weight: 64.91 kg

DRUGS (1)
  1. ALEMTUZUMAB [Suspect]
     Dosage: 3 MG ONCE IV
     Route: 042
     Dates: start: 20110719, end: 20110719

REACTIONS (6)
  - LETHARGY [None]
  - PRESYNCOPE [None]
  - HYPOTENSION [None]
  - DIZZINESS [None]
  - RENAL FAILURE ACUTE [None]
  - PYREXIA [None]
